FAERS Safety Report 5726553-9 (Version None)
Quarter: 2008Q2

REPORT INFORMATION
  Report Type: 
  Country: None (occurrence: None)
  Receive Date: 20080502
  Receipt Date: 20080430
  Transmission Date: 20081010
  Serious: Yes (Other)
  Sender: FDA-Public Use
  Company Number: FR-RB-001062-08

PATIENT
  Sex: Male

DRUGS (5)
  1. SUBUTEX [Suspect]
     Indication: DRUG THERAPY
     Route: 048
     Dates: start: 20050101
  2. SUBUTEX [Suspect]
     Route: 042
  3. ALCOHOL [Concomitant]
     Indication: DRUG USE FOR UNKNOWN INDICATION
  4. HASHISH [Concomitant]
     Indication: DRUG USE FOR UNKNOWN INDICATION
  5. EQUANIL [Suspect]
     Indication: INTENTIONAL DRUG MISUSE
     Dosage: DOSE, ROUTE AND FREQUENCY OF USE UNKNOWN
     Route: 065

REACTIONS (5)
  - AGGRESSION [None]
  - DRUG DIVERSION [None]
  - GENERAL PHYSICAL HEALTH DETERIORATION [None]
  - SUBSTANCE ABUSE [None]
  - WITHDRAWAL SYNDROME [None]
